FAERS Safety Report 7074542-7 (Version None)
Quarter: 2010Q4

REPORT INFORMATION
  Report Type: 
  Country: None (occurrence: None)
  Receive Date: 20101029
  Receipt Date: 20101018
  Transmission Date: 20110411
  Serious: Yes (Life-Threatening, Hospitalization)
  Sender: FDA-Public Use
  Company Number: CA-AMGEN-CANSP2010000310

PATIENT

DRUGS (2)
  1. ENBREL [Suspect]
     Indication: PRODUCT USED FOR UNKNOWN INDICATION
     Dosage: UNK UNK, QWK
     Route: 058
  2. MOBICOX [Concomitant]
     Dosage: UNK

REACTIONS (3)
  - POST PROCEDURAL INFECTION [None]
  - STREPTOCOCCAL INFECTION [None]
  - SYNOVECTOMY [None]
